FAERS Safety Report 9043351 (Version 1)
Quarter: 2013Q1

REPORT INFORMATION
  Report Type: Report from Study
  Country: US (occurrence: US)
  Receive Date: 20130129
  Receipt Date: 20130129
  Transmission Date: 20140127
  Serious: No
  Sender: FDA-Public Use
  Company Number: US-ABBOTT-12P-163-0907058-00

PATIENT
  Age: 64 Year
  Sex: Male
  Weight: 81.72 kg

DRUGS (8)
  1. HUMIRA 40 MG/0.8 ML PEN [Suspect]
     Indication: CROHN^S DISEASE
     Dosage: LOADING DOSE
     Dates: start: 20120214, end: 20120214
  2. HUMIRA 40 MG/0.8 ML PEN [Suspect]
     Dosage: LOADING DOSE
     Dates: start: 20120213, end: 20120213
  3. HUMIRA 40 MG/0.8 ML PEN [Suspect]
     Dates: start: 20120123
  4. HUMIRA 40 MG/0.8 ML PEN [Suspect]
     Dates: start: 20120227, end: 20120227
  5. APRISO [Concomitant]
     Indication: INFLAMMATION
     Dosage: 4 TABS QD
  6. DEXILANT [Concomitant]
     Indication: FLATULENCE
     Dosage: QD
  7. DEXILANT [Concomitant]
     Indication: CROHN^S DISEASE
  8. PREDNISONE [Concomitant]
     Indication: PRODUCT USED FOR UNKNOWN INDICATION
     Dosage: QD

REACTIONS (7)
  - Headache [Not Recovered/Not Resolved]
  - Nausea [Not Recovered/Not Resolved]
  - Dizziness [Not Recovered/Not Resolved]
  - Asthenia [Not Recovered/Not Resolved]
  - Respiration abnormal [Not Recovered/Not Resolved]
  - Dyspnoea [Not Recovered/Not Resolved]
  - Nausea [Not Recovered/Not Resolved]
